FAERS Safety Report 7957008-9 (Version None)
Quarter: 2011Q4

REPORT INFORMATION
  Report Type: 
  Country: None (occurrence: None)
  Receive Date: 20111205
  Receipt Date: 20111205
  Transmission Date: 20120403
  Serious: Yes (Disabling, Other)
  Sender: FDA-Public Use
  Company Number: None

PATIENT
  Age: 56 Year
  Sex: Female
  Weight: 114.75 kg

DRUGS (1)
  1. ATIVAN [Suspect]
     Indication: ANXIETY
     Dates: start: 19870810, end: 20111202

REACTIONS (6)
  - EDUCATIONAL PROBLEM [None]
  - DAYDREAMING [None]
  - MENTAL DISORDER [None]
  - SOMNOLENCE [None]
  - HALLUCINATION [None]
  - DRUG DEPENDENCE [None]
